FAERS Safety Report 10599800 (Version 1)
Quarter: 2014Q4

REPORT INFORMATION
  Report Type: Spontaneous
  Country: US (occurrence: US)
  Receive Date: 20141121
  Receipt Date: 20141121
  Transmission Date: 20150529
  Serious: Yes (Other)
  Sender: FDA-Public Use
  Company Number: US-ABBVIE-14P-163-1309968-00

PATIENT
  Sex: Male

DRUGS (1)
  1. ANDROGEL [Suspect]
     Active Substance: TESTOSTERONE
     Indication: PRODUCT USED FOR UNKNOWN INDICATION
     Route: 062
     Dates: start: 2008, end: 2012

REACTIONS (6)
  - Myocardial infarction [Unknown]
  - Emotional distress [Unknown]
  - Emotional disorder [Unknown]
  - Injury [Unknown]
  - Physical disability [Unknown]
  - Economic problem [Unknown]

NARRATIVE: CASE EVENT DATE: 20121118
